FAERS Safety Report 17985089 (Version 1)
Quarter: 2020Q3

REPORT INFORMATION
  Report Type: Spontaneous
  Country: ID (occurrence: ID)
  Receive Date: 20200706
  Receipt Date: 20200706
  Transmission Date: 20201103
  Serious: Yes (Death, Hospitalization, Other)
  Sender: FDA-Public Use
  Company Number: ID-BAYER-2020-129366

PATIENT
  Age: 55 Year
  Sex: Male
  Weight: 44.3 kg

DRUGS (6)
  1. NEXAVAR [Suspect]
     Active Substance: SORAFENIB
     Indication: HEPATOCELLULAR CARCINOMA
     Dosage: UNK
     Dates: start: 202003, end: 202004
  2. NEXAVAR [Suspect]
     Active Substance: SORAFENIB
     Indication: HEPATOCELLULAR CARCINOMA
     Dosage: 400 MG
     Dates: start: 20190929
  3. NEXAVAR [Suspect]
     Active Substance: SORAFENIB
     Indication: HEPATOCELLULAR CARCINOMA
     Dosage: 800 MG
     Dates: start: 20191218, end: 202002
  4. RICOVIR [Concomitant]
     Dosage: 300 MG
  5. INPEPSA [Concomitant]
     Dosage: 3X15 CC SYRUP
  6. PROPANOLOL [PROPRANOLOL] [Concomitant]
     Active Substance: PROPRANOLOL HYDROCHLORIDE
     Dosage: 2X100 MG SYRUP

REACTIONS (10)
  - Pneumonia [None]
  - Hepatic function abnormal [None]
  - Ascites [None]
  - Oesophageal varices haemorrhage [Fatal]
  - Encephalopathy [None]
  - Jaundice [Fatal]
  - Hepatic failure [None]
  - Pleural effusion [None]
  - Hepatocellular carcinoma [Fatal]
  - Acute kidney injury [None]

NARRATIVE: CASE EVENT DATE: 201912
